FAERS Safety Report 22273649 (Version 2)
Quarter: 2023Q2

REPORT INFORMATION
  Report Type: Spontaneous
  Country: US (occurrence: US)
  Receive Date: 20230502
  Receipt Date: 20230614
  Transmission Date: 20230722
  Serious: Yes (Hospitalization, Other)
  Sender: FDA-Public Use
  Company Number: US-PFIZER INC-PV202300041207

PATIENT
  Age: 72 Year
  Sex: Male
  Weight: 95.25 kg

DRUGS (2)
  1. VYNDAMAX [Suspect]
     Active Substance: TAFAMIDIS
     Indication: Amyloidosis
     Dosage: 61 MG
  2. VYNDAMAX [Suspect]
     Active Substance: TAFAMIDIS
     Dosage: 61 MG, 1X/DAY(ONE PILL A DAY)

REACTIONS (9)
  - Pneumonia [Unknown]
  - Septic shock [Unknown]
  - Cellulitis [Unknown]
  - Oesophageal operation [Unknown]
  - Dysphagia [Recovered/Resolved]
  - Gastrooesophageal reflux disease [Unknown]
  - Hypotension [Not Recovered/Not Resolved]
  - Pyrexia [Unknown]
  - Oxygen saturation decreased [Unknown]

NARRATIVE: CASE EVENT DATE: 20221114
